FAERS Safety Report 17130494 (Version 3)
Quarter: 2020Q1

REPORT INFORMATION
  Report Type: Spontaneous
  Country: US (occurrence: US)
  Receive Date: 20191209
  Receipt Date: 20200113
  Transmission Date: 20200409
  Serious: Yes (Other)
  Sender: FDA-Public Use
  Company Number: US-SHIRE-US201942157

PATIENT
  Age: 35 Year

DRUGS (2)
  1. ADVATE [Suspect]
     Active Substance: ANTIHEMOPHILIC FACTOR, HUMAN RECOMBINANT
     Indication: PRODUCT USED FOR UNKNOWN INDICATION
     Dosage: 3000 INTERNATIONAL UNIT
     Route: 042
  2. ADVATE [Suspect]
     Active Substance: ANTIHEMOPHILIC FACTOR, HUMAN RECOMBINANT
     Dosage: 2000 INTERNATIONAL UNIT
     Route: 042

REACTIONS (3)
  - Expired product administered [Recovered/Resolved]
  - Joint injury [Recovered/Resolved]
  - Haemarthrosis [Recovered/Resolved]

NARRATIVE: CASE EVENT DATE: 20191126
